FAERS Safety Report 6899613-7 (Version None)
Quarter: 2010Q3

REPORT INFORMATION
  Report Type: 
  Country: None (occurrence: None)
  Receive Date: 20100803
  Receipt Date: 20100726
  Transmission Date: 20110219
  Serious: Yes (Death)
  Sender: FDA-Public Use
  Company Number: PHHY2010US49294

PATIENT
  Sex: Male
  Weight: 54.875 kg

DRUGS (1)
  1. EXJADE [Suspect]
     Indication: HAEMOLYTIC ANAEMIA
     Dosage: 1000 MG DAILY
     Route: 048
     Dates: start: 20090209, end: 20100628

REACTIONS (1)
  - CARDIAC VALVE DISEASE [None]
